APPROVED DRUG PRODUCT: GLUMETZA
Active Ingredient: METFORMIN HYDROCHLORIDE
Strength: 1GM
Dosage Form/Route: TABLET, EXTENDED RELEASE;ORAL
Application: N021748 | Product #002
Applicant: SANTARUS INC
Approved: Jun 3, 2005 | RLD: Yes | RS: No | Type: DISCN